FAERS Safety Report 6696961-0 (Version None)
Quarter: 2010Q2

REPORT INFORMATION
  Report Type: 
  Country: None (occurrence: None)
  Receive Date: 20100426
  Receipt Date: 20100419
  Transmission Date: 20101027
  Serious: Yes (Life-Threatening, Hospitalization, Disabling, Other)
  Sender: FDA-Public Use
  Company Number: PHNR2007AU01899

PATIENT
  Sex: Male

DRUGS (7)
  1. TEGRETOL [Suspect]
     Indication: CONVULSION
     Dosage: 400 MG IN THE MORNING AND 300 MG AT NIGHT
     Dates: start: 19820101, end: 20100201
  2. AVAPRO [Interacting]
     Indication: BLOOD PRESSURE
     Dates: start: 20070101
  3. KEPRA [Concomitant]
     Dosage: 1000MG,UNK
  4. NORVASC [Concomitant]
     Dosage: 10MG, UNK
  5. AVAPRO [Concomitant]
     Dosage: 300MG,UNK
  6. ATENOLOL [Concomitant]
     Dosage: 50MG,UNK
  7. ACIMAX [Concomitant]
     Dosage: 20MG,UNK

REACTIONS (8)
  - BLOOD PRESSURE DECREASED [None]
  - BLOOD SODIUM DECREASED [None]
  - CONVULSION [None]
  - DIZZINESS [None]
  - DRUG INTERACTION [None]
  - HEART RATE DECREASED [None]
  - INSOMNIA [None]
  - NEUROSURGERY [None]
